FAERS Safety Report 6556674-2 (Version None)
Quarter: 2010Q1

REPORT INFORMATION
  Report Type: 
  Country: None (occurrence: None)
  Receive Date: 20100128
  Receipt Date: 20100120
  Transmission Date: 20100710
  Serious: Yes (Other)
  Sender: FDA-Public Use
  Company Number: CA-JNJFOC-20100108079

PATIENT
  Age: 38 Year
  Sex: Male

DRUGS (4)
  1. DURAGESIC-100 [Suspect]
     Indication: DRUG USE FOR UNKNOWN INDICATION
     Route: 062
  2. CLARITHROMYCIN [Interacting]
     Indication: PNEUMONIA ASPIRATION
  3. CLARITHROMYCIN [Interacting]
  4. CEFUROXIME [Concomitant]
     Indication: PNEUMONIA ASPIRATION

REACTIONS (3)
  - BLOOD PRESSURE DECREASED [None]
  - DRUG INTERACTION [None]
  - PNEUMONIA ASPIRATION [None]
